FAERS Safety Report 5625466-0 (Version None)
Quarter: 2008Q1

REPORT INFORMATION
  Report Type: 
  Country: None (occurrence: None)
  Receive Date: 20080208
  Receipt Date: 20080130
  Transmission Date: 20080703
  Serious: Yes (Other)
  Sender: FDA-Public Use
  Company Number: 2008003284

PATIENT
  Sex: Female

DRUGS (1)
  1. BENADRYL [Suspect]
     Dosage: 12-15 PILLS EVERY OTHER DAY, ORAL
     Route: 048
     Dates: start: 20060101

REACTIONS (1)
  - DRUG DEPENDENCE [None]
